FAERS Safety Report 8762329 (Version 1)
Quarter: 2012Q4

REPORT INFORMATION
  Report Type: 
  Country: US (occurrence: US)
  Receive Date: 20120830
  Receipt Date: 20120830
  Transmission Date: 20130627
  Serious: No
  Sender: FDA-Public Use
  Company Number: US-B.I. PHARMACEUTICALS,INC./RIDGEFIELD-2012-BP-20581BP

PATIENT
  Age: 78 Year
  Sex: Female

DRUGS (5)
  1. AGGRENOX [Suspect]
     Indication: CEREBROVASCULAR ACCIDENT PROPHYLAXIS
     Route: 048
     Dates: start: 20120628
  2. FUROSEMIDE [Concomitant]
     Indication: DIURETIC THERAPY
     Dosage: 40 mg
     Route: 048
     Dates: start: 2010
  3. TOPROL [Concomitant]
     Indication: CARDIAC DISORDER
     Dosage: 100 mg
     Route: 048
     Dates: start: 2008
  4. SIMVASTATIN [Concomitant]
     Indication: BLOOD CHOLESTEROL ABNORMAL
     Dosage: 40 mg
     Route: 048
  5. LOSARTAN [Concomitant]
     Indication: CARDIAC DISORDER
     Dosage: 25 mg
     Route: 048

REACTIONS (3)
  - Chest pain [Not Recovered/Not Resolved]
  - Headache [Recovered/Resolved]
  - Pollakiuria [Not Recovered/Not Resolved]
